FAERS Safety Report 26118643 (Version 1)
Quarter: 2025Q4

REPORT INFORMATION
  Report Type: Spontaneous
  Country: EU (occurrence: EU)
  Receive Date: 20251203
  Receipt Date: 20251203
  Transmission Date: 20260118
  Serious: Yes (Other)
  Sender: BRISTOL-MYERS SQUIBB COMPANY
  Company Number: EU-BRISTOL-MYERS SQUIBB COMPANY-2025-161603

PATIENT
  Age: 84 Year
  Sex: Male

DRUGS (27)
  1. LUSPATERCEPT [Suspect]
     Active Substance: LUSPATERCEPT
     Indication: Myelodysplastic syndrome with ringed sideroblasts
     Route: 058
  2. LUSPATERCEPT [Suspect]
     Active Substance: LUSPATERCEPT
     Route: 058
  3. LUSPATERCEPT [Suspect]
     Active Substance: LUSPATERCEPT
     Route: 058
  4. LUSPATERCEPT [Suspect]
     Active Substance: LUSPATERCEPT
     Route: 058
     Dates: start: 20240109, end: 20241223
  5. LUSPATERCEPT [Suspect]
     Active Substance: LUSPATERCEPT
  6. LUSPATERCEPT [Suspect]
     Active Substance: LUSPATERCEPT
  7. LUSPATERCEPT [Suspect]
     Active Substance: LUSPATERCEPT
  8. LUSPATERCEPT [Suspect]
     Active Substance: LUSPATERCEPT
  9. LUSPATERCEPT [Suspect]
     Active Substance: LUSPATERCEPT
  10. LUSPATERCEPT [Suspect]
     Active Substance: LUSPATERCEPT
  11. LUSPATERCEPT [Suspect]
     Active Substance: LUSPATERCEPT
  12. DIETARY SUPPLEMENT\HERBALS\MILK THISTLE [Concomitant]
     Active Substance: MILK THISTLE
     Indication: Product used for unknown indication
  13. FOLIC ACID [Concomitant]
     Active Substance: FOLIC ACID
     Indication: Product used for unknown indication
  14. BISOPROLOL [Concomitant]
     Active Substance: BISOPROLOL
     Indication: Product used for unknown indication
  15. DEFERASIROX [Concomitant]
     Active Substance: DEFERASIROX
     Indication: Product used for unknown indication
     Dosage: 20 MG/KG/DAY
     Dates: start: 202206
  16. DUTASTERIDE [Concomitant]
     Active Substance: DUTASTERIDE
     Indication: Product used for unknown indication
  17. EPO alfa [Concomitant]
     Indication: Product used for unknown indication
     Dosage: 30,000 IU S.C. ONCE A WEEK
     Route: 058
     Dates: start: 201904, end: 201911
  18. EPO alfa [Concomitant]
     Dosage: 30,000 IU TWICE WEEKLY
  19. EPO alfa [Concomitant]
     Dates: start: 202503
  20. RIVAROXABAN [Concomitant]
     Active Substance: RIVAROXABAN
     Indication: Product used for unknown indication
  21. TAMSULOSIN [Concomitant]
     Active Substance: TAMSULOSIN
     Indication: Product used for unknown indication
  22. TRANDOLAPRIL [Concomitant]
     Active Substance: TRANDOLAPRIL
     Indication: Product used for unknown indication
  23. VITAMIN B12 [Concomitant]
     Active Substance: CYANOCOBALAMIN
     Indication: Product used for unknown indication
     Route: 030
  24. Ery mass [Concomitant]
     Indication: Product used for unknown indication
     Dates: start: 201810, end: 201903
  25. Ery mass [Concomitant]
     Dates: start: 202209, end: 202303
  26. Ery mass [Concomitant]
     Dosage: EM ADMINISTERED 2X
  27. Ery mass [Concomitant]
     Dates: start: 201911, end: 202209

REACTIONS (3)
  - Myocardial ischaemia [Unknown]
  - Condition aggravated [Unknown]
  - Haemoglobin decreased [Unknown]

NARRATIVE: CASE EVENT DATE: 20250101
